FAERS Safety Report 9566937 (Version 1)
Quarter: 2013Q3

REPORT INFORMATION
  Report Type: Spontaneous
  Country: US (occurrence: US)
  Receive Date: 20130930
  Receipt Date: 20130930
  Transmission Date: 20140515
  Serious: No
  Sender: FDA-Public Use
  Company Number: US-AMGEN-USASP2012060375

PATIENT
  Age: 63 Year
  Sex: Female
  Weight: 73.47 kg

DRUGS (11)
  1. ENBREL [Suspect]
     Indication: PRODUCT USED FOR UNKNOWN INDICATION
     Dosage: 50 MG, QWK
     Route: 058
  2. MOBIC [Concomitant]
     Dosage: 7.5 MG, UNK
  3. CYCLOBENZAPRIN HCL [Concomitant]
     Dosage: 15 MG, UNK
  4. TRAMADOL [Concomitant]
     Dosage: 50 MG, UNK
  5. DIOVAN [Concomitant]
     Dosage: 40 MG, UNK
  6. SIMVASTATIN [Concomitant]
     Dosage: 10 MG, UNK
  7. OMEPRAZOLE [Concomitant]
     Dosage: 10 MG, UNK
  8. MULTIVITAMIN                       /00097801/ [Concomitant]
  9. PRESERVISION [Concomitant]
  10. FISH OIL [Concomitant]
  11. LUTEIN                             /01638501/ [Concomitant]
     Dosage: UNK

REACTIONS (2)
  - Injection site pain [Unknown]
  - Pneumonia [Unknown]
